FAERS Safety Report 12664549 (Version 4)
Quarter: 2017Q1

REPORT INFORMATION
  Report Type: Spontaneous
  Country: US (occurrence: US)
  Receive Date: 20160818
  Receipt Date: 20170103
  Transmission Date: 20170428
  Serious: No
  Sender: FDA-Public Use
  Company Number: US-PFIZER INC-2016388646

PATIENT
  Age: 66 Year
  Sex: Male
  Weight: 97.52 kg

DRUGS (15)
  1. ZOCOR [Concomitant]
     Active Substance: SIMVASTATIN
     Indication: HYPERCHOLESTEROLAEMIA
     Dosage: 40 MG, 1X/DAY
     Route: 048
     Dates: start: 2005
  2. TESSALON [Concomitant]
     Active Substance: BENZONATATE
     Indication: COUGH
     Dosage: 100 MG, 1X/DAY
     Route: 048
     Dates: start: 2016
  3. LOMOTIL [Concomitant]
     Active Substance: ATROPINE SULFATE\DIPHENOXYLATE HYDROCHLORIDE
     Indication: DIARRHOEA
     Dosage: AS NEEDED (2.5, CAN TAKE UP TO 8 A DAY BY MOUTH, PRN)
     Route: 048
     Dates: start: 2016
  4. AMLODIPINE [Concomitant]
     Active Substance: AMLODIPINE BESYLATE
     Dosage: UNK
  5. METOPROLOL TARTRATE. [Concomitant]
     Active Substance: METOPROLOL TARTRATE
     Indication: BLOOD PRESSURE MANAGEMENT
  6. VASOTEC [Concomitant]
     Active Substance: ENALAPRIL MALEATE
     Indication: BLOOD PRESSURE MANAGEMENT
     Dosage: 10 MG, 2X/DAY
     Route: 048
     Dates: start: 2005
  7. PRILOSEC [Concomitant]
     Active Substance: OMEPRAZOLE MAGNESIUM
     Indication: DYSPEPSIA
     Dosage: 40 MG, 1X/DAY
     Route: 048
     Dates: start: 2016
  8. SUTENT [Suspect]
     Active Substance: SUNITINIB MALATE
     Indication: METASTASES TO LYMPH NODES
     Dosage: 50 MG, CYCLIC (1 A DAY BY MOUTH FOR 28 DAYS, OFF FOR 14 DAYS)
     Route: 048
     Dates: start: 201603
  9. SUTENT [Suspect]
     Active Substance: SUNITINIB MALATE
     Dosage: 50 MG, CYCLIC, FOR 28 DAYS AND OFF FOR 14 DAYS
     Route: 048
     Dates: start: 201604
  10. METOPROLOL TARTRATE. [Concomitant]
     Active Substance: METOPROLOL TARTRATE
     Indication: MYOCARDIAL INFARCTION
     Dosage: 25 MG, 2X/DAY
     Route: 048
     Dates: start: 2005
  11. PRILOSEC [Concomitant]
     Active Substance: OMEPRAZOLE MAGNESIUM
     Indication: DYSPEPSIA
  12. RANITIDINE. [Concomitant]
     Active Substance: RANITIDINE
     Indication: DYSPEPSIA
     Dosage: 150 MG, 2X/DAY
     Route: 048
     Dates: start: 2016
  13. FISH OIL [Concomitant]
     Active Substance: FISH OIL
     Dosage: UNK
  14. LOMOTIL [Concomitant]
     Active Substance: ATROPINE SULFATE\DIPHENOXYLATE HYDROCHLORIDE
     Dosage: UNK
  15. PHENERGAN [Concomitant]
     Active Substance: PROMETHAZINE HYDROCHLORIDE
     Indication: NAUSEA
     Dosage: 25 MG, AS NEEDED (1 EVERY NIGHT)
     Dates: start: 2016

REACTIONS (7)
  - Condition aggravated [Not Recovered/Not Resolved]
  - Insomnia [Unknown]
  - Dehydration [Unknown]
  - Cough [Unknown]
  - Sneezing [Unknown]
  - Hypertension [Not Recovered/Not Resolved]
  - Diarrhoea [Not Recovered/Not Resolved]

NARRATIVE: CASE EVENT DATE: 201603
